FAERS Safety Report 13250131 (Version 1)
Quarter: 2017Q1

REPORT INFORMATION
  Report Type: Spontaneous
  Country: US (occurrence: US)
  Receive Date: 20170218
  Receipt Date: 20170218
  Transmission Date: 20170428
  Serious: No
  Sender: FDA-Public Use
  Company Number: US-ALLERGAN-1667220US

PATIENT
  Age: 69 Year
  Sex: Male

DRUGS (1)
  1. RESTASIS [Suspect]
     Active Substance: CYCLOSPORINE
     Indication: DRY EYE
     Dosage: 1 GTT, BID
     Route: 047
     Dates: start: 20160810, end: 20160828

REACTIONS (10)
  - Eye pain [Recovered/Resolved]
  - Eye irritation [Recovered/Resolved]
  - Dysgeusia [Recovered/Resolved]
  - Sleep disorder [Recovered/Resolved]
  - Eyelid irritation [Recovered/Resolved]
  - Photophobia [Recovered/Resolved]
  - Eyelid oedema [Recovered/Resolved]
  - Nasal congestion [Recovered/Resolved]
  - Vision blurred [Recovered/Resolved]
  - Foreign body sensation in eyes [Recovered/Resolved]

NARRATIVE: CASE EVENT DATE: 201608
